FAERS Safety Report 20246740 (Version 1)
Quarter: 2021Q4

REPORT INFORMATION
  Report Type: Spontaneous
  Country: BE (occurrence: BE)
  Receive Date: 20211229
  Receipt Date: 20211229
  Transmission Date: 20220303
  Serious: Yes (Hospitalization, Other)
  Sender: FDA-Public Use
  Company Number: BE-EMA-DD-20211222-singh_p11-132626

PATIENT
  Age: 59 Year
  Sex: Male

DRUGS (9)
  1. CEFTAZIDIME [Suspect]
     Active Substance: CEFTAZIDIME
     Indication: Enterobacter infection
     Dosage: UNK
     Route: 065
     Dates: start: 2020
  2. OXACILLIN [Suspect]
     Active Substance: OXACILLIN SODIUM
     Indication: Enterobacter infection
     Dosage: UNK
     Route: 065
     Dates: start: 2020
  3. ACYCLOVIR [Suspect]
     Active Substance: ACYCLOVIR
     Indication: Herpes simplex
     Dosage: UNK
     Route: 065
     Dates: start: 2020
  4. TEMOCILLIN [Suspect]
     Active Substance: TEMOCILLIN
     Indication: Enterobacter infection
     Dosage: UNK
     Route: 065
     Dates: start: 2020
  5. FLUCLOXACILLIN [Suspect]
     Active Substance: FLUCLOXACILLIN
     Indication: Enterobacter infection
     Dosage: UNK
     Route: 065
     Dates: start: 2020
  6. CIPROFLOXACIN [Suspect]
     Active Substance: CIPROFLOXACIN
     Indication: Enterobacter infection
     Dosage: UNK
     Route: 065
     Dates: start: 2020
  7. GANCICLOVIR [Suspect]
     Active Substance: GANCICLOVIR
     Indication: Herpes simplex
     Dosage: UNK
     Route: 065
     Dates: start: 2020
  8. VANCOMYCIN [Suspect]
     Active Substance: VANCOMYCIN
     Indication: Enterobacter infection
     Dosage: UNK
     Route: 065
     Dates: start: 2020
  9. HYDROXYCHLOROQUINE [Suspect]
     Active Substance: HYDROXYCHLOROQUINE
     Indication: COVID-19
     Dosage: UNK
     Route: 065
     Dates: start: 2020

REACTIONS (4)
  - Off label use [Not Recovered/Not Resolved]
  - Toxicity to various agents [Not Recovered/Not Resolved]
  - Liver injury [Not Recovered/Not Resolved]
  - Product use in unapproved indication [Unknown]

NARRATIVE: CASE EVENT DATE: 20200101
